FAERS Safety Report 5204007-6 (Version None)
Quarter: 2007Q1

REPORT INFORMATION
  Report Type: 
  Country: None (occurrence: None)
  Receive Date: 20070110
  Receipt Date: 20061025
  Transmission Date: 20070707
  Serious: Yes (Other)
  Sender: FDA-Public Use
  Company Number: US-PFIZER INC-2006130755

PATIENT
  Sex: Female
  Weight: 61.2 kg

DRUGS (4)
  1. NEURONTIN [Suspect]
     Indication: NEURALGIA
     Dates: start: 20060101, end: 20060101
  2. LYRICA [Suspect]
     Indication: NEURALGIA
     Dates: start: 20060101, end: 20060101
  3. ANTIBIOTICS [Suspect]
     Indication: KIDNEY INFECTION
     Dates: start: 20061001, end: 20061001
  4. PROZAC [Concomitant]

REACTIONS (3)
  - ACTIVITIES OF DAILY LIVING IMPAIRED [None]
  - BEDRIDDEN [None]
  - SURGERY [None]
